FAERS Safety Report 14962941 (Version 1)
Quarter: 2018Q2

REPORT INFORMATION
  Report Type: Spontaneous
  Country: US (occurrence: US)
  Receive Date: 20180510
  Receipt Date: 20180510
  Transmission Date: 20180711
  Serious: Yes (Hospitalization)
  Sender: FDA-Public Use
  Company Number: None

PATIENT
  Age: 29 Year
  Sex: Male
  Weight: 144 kg

DRUGS (2)
  1. INVEGA SUSTENNA [Suspect]
     Active Substance: PALIPERIDONE PALMITATE
     Dates: start: 20170401, end: 20180401
  2. INVEGA SUSTENNA [Suspect]
     Active Substance: PALIPERIDONE PALMITATE
     Dates: start: 20180401, end: 20180510

REACTIONS (17)
  - Headache [None]
  - Dyskinesia [None]
  - Panic attack [None]
  - Confusional state [None]
  - Musculoskeletal stiffness [None]
  - Abdominal pain [None]
  - Anorectal swelling [None]
  - Negative thoughts [None]
  - Dyspnoea [None]
  - Pain [None]
  - Anxiety [None]
  - Somnolence [None]
  - Depression [None]
  - Dysphemia [None]
  - Eye movement disorder [None]
  - Weight increased [None]
  - Proctalgia [None]

NARRATIVE: CASE EVENT DATE: 20170401
